FAERS Safety Report 14017139 (Version 1)
Quarter: 2017Q3

REPORT INFORMATION
  Report Type: Report from Study
  Country: IT (occurrence: IT)
  Receive Date: 20170927
  Receipt Date: 20170927
  Transmission Date: 20171128
  Serious: Yes (Other)
  Sender: FDA-Public Use
  Company Number: IT-MYLANLABS-2017M1058723

PATIENT
  Age: 40 Year
  Sex: Female

DRUGS (3)
  1. FLUCONAZOLE. [Suspect]
     Active Substance: FLUCONAZOLE
     Indication: OESOPHAGEAL CANDIDIASIS
     Dates: start: 20170831
  2. SODIUM ALGINATE W/SODIUM BICARBONATE [Suspect]
     Active Substance: SODIUM ALGINATE\SODIUM BICARBONATE
     Indication: OESOPHAGEAL CANDIDIASIS
     Dates: start: 20170831
  3. PANTOPRAZOLE [Suspect]
     Active Substance: PANTOPRAZOLE
     Indication: OESOPHAGEAL CANDIDIASIS
     Dates: start: 20170831

REACTIONS (3)
  - Abdominal pain upper [Unknown]
  - Pruritus generalised [Unknown]
  - Erythema [Unknown]

NARRATIVE: CASE EVENT DATE: 20170901
